FAERS Safety Report 14160721 (Version 1)
Quarter: 2017Q4

REPORT INFORMATION
  Report Type: Spontaneous
  Country: US (occurrence: US)
  Receive Date: 20171103
  Receipt Date: 20171103
  Transmission Date: 20180321
  Serious: Yes (Disabling, Other)
  Sender: FDA-Public Use
  Company Number: None

PATIENT
  Age: 52 Year
  Sex: Male

DRUGS (2)
  1. CLONAZEPAM. [Suspect]
     Active Substance: CLONAZEPAM
     Indication: INSOMNIA
     Route: 048
     Dates: start: 20140430, end: 20170928
  2. CLONAZEPAM. [Suspect]
     Active Substance: CLONAZEPAM
     Indication: ANXIETY
     Route: 048
     Dates: start: 20140430, end: 20170928

REACTIONS (46)
  - Hyperhidrosis [None]
  - Feeling of body temperature change [None]
  - Visual impairment [None]
  - Dizziness [None]
  - Impaired driving ability [None]
  - Depersonalisation/derealisation disorder [None]
  - Psoriasis [None]
  - Balance disorder [None]
  - Nightmare [None]
  - Disturbance in attention [None]
  - Agitation [None]
  - Therapy change [None]
  - Asthenia [None]
  - Loss of personal independence in daily activities [None]
  - Panic reaction [None]
  - Skin burning sensation [None]
  - Poor peripheral circulation [None]
  - Paraesthesia [None]
  - Confusional state [None]
  - Withdrawal syndrome [None]
  - Rash [None]
  - Anger [None]
  - Burning sensation [None]
  - Arthralgia [None]
  - Memory impairment [None]
  - Derealisation [None]
  - Suicidal ideation [None]
  - Paranoia [None]
  - Dry skin [None]
  - Fear [None]
  - Cognitive disorder [None]
  - Myalgia [None]
  - Night sweats [None]
  - Peripheral coldness [None]
  - Hypoaesthesia oral [None]
  - Nausea [None]
  - Hypoaesthesia [None]
  - Fatigue [None]
  - Agoraphobia [None]
  - Dry mouth [None]
  - Reading disorder [None]
  - Headache [None]
  - Depression [None]
  - Insomnia [None]
  - Anhedonia [None]
  - Back pain [None]

NARRATIVE: CASE EVENT DATE: 20170201
